FAERS Safety Report 6345336-2 (Version None)
Quarter: 2009Q3

REPORT INFORMATION
  Report Type: 
  Country: None (occurrence: None)
  Receive Date: 20090821
  Receipt Date: 20090601
  Transmission Date: 20100115
  Serious: No
  Sender: FDA-Public Use
  Company Number: 8047312

PATIENT
  Age: 59 Year
  Sex: Female

DRUGS (14)
  1. CIMZIA [Suspect]
     Indication: CROHN'S DISEASE
     Dosage: 400 MG SC
     Route: 058
     Dates: start: 20090528
  2. REMICADE [Concomitant]
  3. FORTEO [Concomitant]
  4. NIFEREX [Concomitant]
  5. VITAMIN B-12 [Concomitant]
  6. VITAMIN E [Concomitant]
  7. ESTER-C [Concomitant]
  8. FISH OIL [Concomitant]
  9. CENTRUM [Concomitant]
  10. PERCOCET [Concomitant]
  11. TEMAZEPAM [Concomitant]
  12. LOMOTIL [Concomitant]
  13. ADVIL [Concomitant]
  14. ASACOL [Concomitant]

REACTIONS (3)
  - ARTHRALGIA [None]
  - INFLUENZA LIKE ILLNESS [None]
  - PYREXIA [None]
